FAERS Safety Report 12172434 (Version 1)
Quarter: 2016Q1

REPORT INFORMATION
  Report Type: Spontaneous
  Country: IT (occurrence: IT)
  Receive Date: 20160311
  Receipt Date: 20160311
  Transmission Date: 20160526
  Serious: Yes (Other)
  Sender: FDA-Public Use
  Company Number: IT-MEDTRONIC-1048938

PATIENT

DRUGS (1)
  1. BACLOFEN UNKNOWN [Suspect]
     Active Substance: BACLOFEN
     Route: 037

REACTIONS (4)
  - No therapeutic response [Unknown]
  - Cerebrospinal fistula [Unknown]
  - Muscle spasticity [Unknown]
  - Implant site extravasation [Unknown]

NARRATIVE: CASE EVENT DATE: 20160120
